FAERS Safety Report 6860057-5 (Version None)
Quarter: 2010Q3

REPORT INFORMATION
  Report Type: 
  Country: None (occurrence: None)
  Receive Date: 20100720
  Receipt Date: 20100712
  Transmission Date: 20110219
  Serious: Yes (Other)
  Sender: FDA-Public Use
  Company Number: ES-AMGEN-UK389307

PATIENT
  Age: 65 Year
  Sex: Female
  Weight: 72 kg

DRUGS (3)
  1. ARANESP [Suspect]
     Indication: DIALYSIS
     Route: 058
     Dates: start: 20030421
  2. UNSPECIFIED ANTIHYPERTENSIVE AGENT [Concomitant]
  3. IRON [Concomitant]
     Route: 042

REACTIONS (1)
  - PERITONITIS [None]
